FAERS Safety Report 8257658-9 (Version None)
Quarter: 2012Q2

REPORT INFORMATION
  Report Type: 
  Country: None (occurrence: None)
  Receive Date: 20120403
  Receipt Date: 20120323
  Transmission Date: 20120825
  Serious: Yes (Life-Threatening, Hospitalization, Other)
  Sender: FDA-Public Use
  Company Number: DE-MERCK-1203DEU00023

PATIENT
  Age: 74 Year
  Sex: Male
  Weight: 90 kg

DRUGS (15)
  1. NADROPARIN CALCIUM [Concomitant]
     Route: 058
  2. DIPYRONE TAB [Suspect]
     Indication: PAIN
     Route: 042
     Dates: start: 20110922, end: 20110922
  3. TORSEMIDE [Concomitant]
     Route: 048
  4. AMIODARONE HYDROCHLORIDE [Concomitant]
     Route: 065
  5. HYZAAR [Suspect]
     Route: 048
     Dates: start: 20110928, end: 20110930
  6. NALOXONE HCL [Suspect]
     Indication: PAIN
     Route: 048
     Dates: start: 20110922, end: 20111030
  7. DIPYRONE TAB [Suspect]
     Route: 042
     Dates: start: 20110923, end: 20110923
  8. DIPYRONE TAB [Suspect]
     Route: 048
     Dates: start: 20110922, end: 20111002
  9. METOPROLOL SUCCINATE [Concomitant]
     Route: 048
  10. FLUVASTATIN SODIUM [Concomitant]
     Route: 048
  11. ZETIA [Concomitant]
     Route: 048
  12. HYZAAR [Suspect]
     Indication: HYPERTENSION
     Route: 048
     Dates: start: 19930101, end: 20110920
  13. HYZAAR [Suspect]
     Route: 048
     Dates: start: 20111002, end: 20111012
  14. AMOXICILLIN [Suspect]
     Indication: PNEUMONIA
     Route: 048
     Dates: start: 20111005, end: 20111011
  15. PHENPROCOUMON [Concomitant]
     Route: 048

REACTIONS (14)
  - OSTEOARTHRITIS [None]
  - ARTHRITIS [None]
  - RENAL CYST [None]
  - CARDIAC DISORDER [None]
  - HAEMORRHAGE SUBCUTANEOUS [None]
  - CARDIAC FAILURE [None]
  - BRONCHITIS [None]
  - RENAL FAILURE [None]
  - HYPOTENSION [None]
  - ATRIAL FIBRILLATION [None]
  - GASTRITIS [None]
  - ANAEMIA POSTOPERATIVE [None]
  - HYPOKALAEMIA [None]
  - LIPID METABOLISM DISORDER [None]
